FAERS Safety Report 7737783-9 (Version None)
Quarter: 2011Q3

REPORT INFORMATION
  Report Type: 
  Country: None (occurrence: None)
  Receive Date: 20110908
  Receipt Date: 20110825
  Transmission Date: 20111222
  Serious: Yes (Other)
  Sender: FDA-Public Use
  Company Number: PHHY2011MX76648

PATIENT
  Sex: Female

DRUGS (1)
  1. DIOVAN [Suspect]
     Indication: HYPERTENSION
     Dosage: 80 MG, DAILY
     Dates: start: 20090801

REACTIONS (10)
  - PAIN IN EXTREMITY [None]
  - CONTUSION [None]
  - BACK PAIN [None]
  - SPINAL CORD INJURY [None]
  - ROAD TRAFFIC ACCIDENT [None]
  - MOVEMENT DISORDER [None]
  - WEIGHT BEARING DIFFICULTY [None]
  - INTERVERTEBRAL DISC DISPLACEMENT [None]
  - OBESITY [None]
  - MUSCLE STRAIN [None]
